APPROVED DRUG PRODUCT: KIONEX
Active Ingredient: SODIUM POLYSTYRENE SULFONATE
Strength: 454GM/BOT
Dosage Form/Route: POWDER;ORAL, RECTAL
Application: A040029 | Product #001 | TE Code: AA
Applicant: ANI PHARMACEUTICALS INC
Approved: Feb 6, 1998 | RLD: No | RS: No | Type: RX